FAERS Safety Report 10197710 (Version 1)
Quarter: 2014Q2

REPORT INFORMATION
  Report Type: Spontaneous
  Country: US (occurrence: US)
  Receive Date: 20140527
  Receipt Date: 20140527
  Transmission Date: 20141212
  Serious: Yes (Other)
  Sender: FDA-Public Use
  Company Number: US-BRISTOL-MYERS SQUIBB COMPANY-19470921

PATIENT
  Age: 76 Year
  Sex: Male

DRUGS (2)
  1. PRAVASTATIN SODIUM [Suspect]
     Dates: start: 20130827
  2. VICTOZA [Concomitant]

REACTIONS (1)
  - Pancreatitis [Unknown]
